FAERS Safety Report 16860956 (Version 1)
Quarter: 2019Q3

REPORT INFORMATION
  Report Type: Spontaneous
  Country: US (occurrence: US)
  Receive Date: 20190927
  Receipt Date: 20190927
  Transmission Date: 20191005
  Serious: Yes (Other)
  Sender: FDA-Public Use
  Company Number: US-ROCHE-2421995

PATIENT
  Age: 31 Year
  Sex: Female

DRUGS (1)
  1. ALTEPLASE. [Suspect]
     Active Substance: ALTEPLASE
     Indication: CEREBROVASCULAR ACCIDENT
     Route: 042

REACTIONS (4)
  - Vertebral artery occlusion [Unknown]
  - Diplopia [Unknown]
  - Horner^s syndrome [Unknown]
  - Lateral medullary syndrome [Unknown]
